FAERS Safety Report 24775752 (Version 2)
Quarter: 2025Q1

REPORT INFORMATION
  Report Type: Spontaneous
  Country: US (occurrence: US)
  Receive Date: 20241226
  Receipt Date: 20250206
  Transmission Date: 20250408
  Serious: No
  Sender: TAKEDA
  Company Number: US-TAKEDA-2024TUS129347

PATIENT
  Sex: Female

DRUGS (16)
  1. PREVACID [Suspect]
     Active Substance: LANSOPRAZOLE
     Indication: Product used for unknown indication
  2. LEXAPRO [Concomitant]
     Active Substance: ESCITALOPRAM OXALATE
  3. SINGULAIR [Concomitant]
     Active Substance: MONTELUKAST SODIUM
  4. PANTOPRAZOLE SODIUM [Concomitant]
     Active Substance: PANTOPRAZOLE SODIUM
  5. PREDNISONE [Concomitant]
     Active Substance: PREDNISONE
  6. SUCRALFATE [Concomitant]
     Active Substance: SUCRALFATE
  7. VOLTAREN [Concomitant]
     Active Substance: DICLOFENAC SODIUM
  8. TIZANIDINE HYDROCHLORIDE [Concomitant]
     Active Substance: TIZANIDINE HYDROCHLORIDE
  9. POTASSIUM CHLORIDE [Concomitant]
     Active Substance: POTASSIUM CHLORIDE
  10. FLORAJEN3 [Concomitant]
  11. LORAZEPAM [Concomitant]
     Active Substance: LORAZEPAM
  12. ACYCLOVIR [Concomitant]
     Active Substance: ACYCLOVIR
  13. HYDROCHLOROTHIAZIDE [Concomitant]
     Active Substance: HYDROCHLOROTHIAZIDE
  14. ESTRADIOL [Concomitant]
     Active Substance: ESTRADIOL
  15. FOSFOMYCIN [Concomitant]
     Active Substance: FOSFOMYCIN
  16. TROMETHAMINE [Concomitant]
     Active Substance: TROMETHAMINE

REACTIONS (1)
  - Headache [Unknown]
